FAERS Safety Report 5301056-4 (Version None)
Quarter: 2007Q2

REPORT INFORMATION
  Report Type: 
  Country: None (occurrence: None)
  Receive Date: 20070411
  Receipt Date: 20070328
  Transmission Date: 20071010
  Serious: Yes (Disabling)
  Sender: FDA-Public Use
  Company Number: PHHO2007JP02674

PATIENT
  Age: 85 Year
  Sex: Male
  Weight: 57.0171 kg

DRUGS (1)
  1. VISUDYNE [Suspect]
     Indication: MACULAR DEGENERATION
     Dates: start: 20060120, end: 20060120

REACTIONS (3)
  - FIBROSIS [None]
  - RETINAL DEGENERATION [None]
  - RETINAL INJURY [None]
